FAERS Safety Report 6641503-9 (Version None)
Quarter: 2010Q1

REPORT INFORMATION
  Report Type: 
  Country: None (occurrence: None)
  Receive Date: 20100317
  Receipt Date: 20100317
  Transmission Date: 20100710
  Serious: Yes (Hospitalization)
  Sender: FDA-Public Use
  Company Number: None

PATIENT
  Age: 79 Year
  Sex: Male
  Weight: 99 kg

DRUGS (10)
  1. NAPROXEN [Suspect]
     Indication: ARTHRALGIA
     Dosage: 3-4G DAILY PO (OUTPATIENT)
     Route: 048
  2. ATENOLOL [Concomitant]
  3. CARVEDILOL [Concomitant]
  4. DILTIAZEM HCL [Concomitant]
  5. TERAZOSIN HCL [Concomitant]
  6. LISINOPRIL [Concomitant]
  7. FUROSEMIDE [Concomitant]
  8. LOVAZA [Concomitant]
  9. DOCUSATE [Concomitant]
  10. ZOLPIDEM [Concomitant]

REACTIONS (5)
  - ASTHENIA [None]
  - DIZZINESS [None]
  - GASTRIC ULCER [None]
  - GASTROINTESTINAL HAEMORRHAGE [None]
  - REFUSAL OF TREATMENT BY PATIENT [None]
